FAERS Safety Report 15450281 (Version 1)
Quarter: 2018Q3

REPORT INFORMATION
  Report Type: Spontaneous
  Country: US (occurrence: US)
  Receive Date: 20180927
  Receipt Date: 20180927
  Transmission Date: 20181010
  Serious: Yes (Life-Threatening)
  Sender: FDA-Public Use
  Company Number: None

PATIENT
  Age: 80 Year
  Sex: Male
  Weight: 94.3 kg

DRUGS (1)
  1. XARELTO [Suspect]
     Active Substance: RIVAROXABAN
     Indication: ATRIAL FIBRILLATION

REACTIONS (6)
  - Cerebrovascular accident [None]
  - Vomiting [None]
  - Confusional state [None]
  - Hemiparesis [None]
  - Facial paralysis [None]
  - Speech disorder [None]

NARRATIVE: CASE EVENT DATE: 20180926
